FAERS Safety Report 7265144-8 (Version None)
Quarter: 2011Q1

REPORT INFORMATION
  Report Type: 
  Country: None (occurrence: None)
  Receive Date: 20110131
  Receipt Date: 20110126
  Transmission Date: 20110831
  Serious: Yes (Life-Threatening, Other)
  Sender: FDA-Public Use
  Company Number: PHHY2011EC06105

PATIENT
  Age: 74 Year
  Sex: Female

DRUGS (3)
  1. DILATREND [Concomitant]
     Indication: HYPERTENSION
     Dosage: UNK
     Route: 048
  2. DIOVAN [Concomitant]
     Indication: HYPERTENSION
     Dosage: UNK
     Route: 048
  3. EXELON [Suspect]
     Indication: DEMENTIA ALZHEIMER'S TYPE
     Dosage: 4.5 MG, QD
     Route: 062
     Dates: start: 20110101

REACTIONS (2)
  - VOMITING [None]
  - APPARENT DEATH [None]
